FAERS Safety Report 4610383-5 (Version None)
Quarter: 2005Q1

REPORT INFORMATION
  Report Type: 
  Country: None (occurrence: None)
  Receive Date: 20050301
  Receipt Date: 20041227
  Transmission Date: 20050727
  Serious: No
  Sender: FDA-Public Use
  Company Number: WAES 0412USA02914

PATIENT
  Age: 50 Year
  Sex: Male

DRUGS (5)
  1. ZETIA [Suspect]
     Indication: BLOOD CHOLESTEROL INCREASED
     Dosage: 10 MG/DAILY/PO
     Route: 048
     Dates: start: 20041217, end: 20041226
  2. MIACALCIN [Concomitant]
  3. NEXIUM [Concomitant]
  4. SYNTHROID [Concomitant]
  5. ZOCOR [Concomitant]

REACTIONS (3)
  - ANOREXIA [None]
  - BLOOD PRESSURE INCREASED [None]
  - HEART RATE INCREASED [None]
